FAERS Safety Report 16958958 (Version 4)
Quarter: 2020Q2

REPORT INFORMATION
  Report Type: Spontaneous
  Country: US (occurrence: US)
  Receive Date: 20191024
  Receipt Date: 20200508
  Transmission Date: 20200713
  Serious: No
  Sender: FDA-Public Use
  Company Number: US-VIFOR (INTERNATIONAL) INC.-VIT-2019-09546

PATIENT
  Age: 80 Year
  Sex: Male
  Weight: 116.68 kg

DRUGS (13)
  1. ACTOS [Concomitant]
     Active Substance: PIOGLITAZONE HYDROCHLORIDE
     Indication: DIABETES MELLITUS
  2. ADVAIR HFA [Concomitant]
     Active Substance: FLUTICASONE PROPIONATE\SALMETEROL XINAFOATE
  3. ASPIRIN. [Concomitant]
     Active Substance: ASPIRIN
  4. JANUVIA [Concomitant]
     Active Substance: SITAGLIPTIN PHOSPHATE
     Indication: DIABETES MELLITUS
  5. VELTASSA [Suspect]
     Active Substance: PATIROMER
     Indication: HYPERKALAEMIA
     Route: 048
     Dates: start: 20190618
  6. DOXYCYCLINE. [Concomitant]
     Active Substance: DOXYCYCLINE
  7. FENOFIBRATE. [Concomitant]
     Active Substance: FENOFIBRATE
  8. METOPROLOL. [Concomitant]
     Active Substance: METOPROLOL
  9. CRESTOR [Concomitant]
     Active Substance: ROSUVASTATIN CALCIUM
  10. FLOMAX [Concomitant]
     Active Substance: TAMSULOSIN HYDROCHLORIDE
  11. LISINOPRIL- HYDROCHLOROTHIAZIDE [Concomitant]
     Dosage: 10-12.5 MG
  12. INCRUSE ELLIPTA [Concomitant]
     Active Substance: UMECLIDINIUM BROMIDE
  13. GABAPENTIN. [Concomitant]
     Active Substance: GABAPENTIN

REACTIONS (6)
  - Back pain [Not Recovered/Not Resolved]
  - Product dose omission [Not Recovered/Not Resolved]
  - Off label use [Unknown]
  - Gastroenteritis viral [Recovered/Resolved]
  - Spinal nerve stimulator implantation [Unknown]
  - Blood potassium increased [Not Recovered/Not Resolved]

NARRATIVE: CASE EVENT DATE: 2019
